FAERS Safety Report 9380342 (Version 3)
Quarter: 2014Q1

REPORT INFORMATION
  Report Type: Spontaneous
  Country: US (occurrence: US)
  Receive Date: 20130702
  Receipt Date: 20140228
  Transmission Date: 20141002
  Serious: Yes (Hospitalization)
  Sender: FDA-Public Use
  Company Number: US-GLAXOSMITHKLINE-A1029273A

PATIENT
  Sex: Male

DRUGS (1)
  1. AVANDIA [Suspect]
     Indication: DIABETES MELLITUS
     Route: 048

REACTIONS (8)
  - Cardiac pacemaker insertion [Unknown]
  - Retinal oedema [Unknown]
  - Cardiac disorder [Unknown]
  - Cerebral haemorrhage [Unknown]
  - Cardiac failure congestive [Unknown]
  - Atrioventricular block complete [Unknown]
  - Cerebrovascular accident [Unknown]
  - Atrial fibrillation [Unknown]
